FAERS Safety Report 4975495-5 (Version None)
Quarter: 2006Q2

REPORT INFORMATION
  Report Type: 
  Country: None (occurrence: None)
  Receive Date: 20060417
  Receipt Date: 20060417
  Transmission Date: 20061013
  Serious: Yes (Hospitalization)
  Sender: FDA-Public Use
  Company Number: None

PATIENT
  Age: 36 Year
  Sex: Male
  Weight: 61.2356 kg

DRUGS (1)
  1. DILANTIN [Suspect]
     Indication: GRAND MAL CONVULSION
     Dosage: 300 MG PO Q AM + 200 MG PO Q PM
     Route: 048

REACTIONS (5)
  - DIFFICULTY IN WALKING [None]
  - DRUG LEVEL INCREASED [None]
  - DYSARTHRIA [None]
  - MENTAL STATUS CHANGES [None]
  - NYSTAGMUS [None]
